FAERS Safety Report 9745960 (Version 1)
Quarter: 2013Q4

REPORT INFORMATION
  Report Type: Spontaneous
  Country: US (occurrence: None)
  Receive Date: 20131206
  Receipt Date: 20131206
  Transmission Date: 20140711
  Serious: Yes (Hospitalization)
  Sender: FDA-Public Use
  Company Number: None

PATIENT
  Age: 43 Year
  Sex: Male
  Weight: 90 kg

DRUGS (1)
  1. CUBICIN [Suspect]
     Indication: STAPHYLOCOCCAL INFECTION
     Route: 042
     Dates: start: 20131111, end: 20131202

REACTIONS (6)
  - Pyrexia [None]
  - Dyspnoea [None]
  - Cough [None]
  - Tachycardia [None]
  - Pleuritic pain [None]
  - Pneumonitis [None]
